FAERS Safety Report 13217670 (Version 1)
Quarter: 2017Q1

REPORT INFORMATION
  Report Type: Other
  Country: US (occurrence: US)
  Receive Date: 20170210
  Receipt Date: 20170210
  Transmission Date: 20170428
  Serious: No
  Sender: FDA-Public Use
  Company Number: US-ACORDA-ACO_122036_2016

PATIENT
  Sex: Male

DRUGS (1)
  1. AMPYRA [Suspect]
     Active Substance: DALFAMPRIDINE
     Indication: PRODUCT USED FOR UNKNOWN INDICATION
     Dosage: 10 MG, BID
     Route: 065
     Dates: start: 20151209, end: 20151230

REACTIONS (6)
  - Decreased interest [Unknown]
  - Dysuria [Unknown]
  - Insomnia [Unknown]
  - Mental disorder [Unknown]
  - Constipation [Unknown]
  - Affective disorder [Unknown]
